FAERS Safety Report 8790861 (Version 1)
Quarter: 2012Q4

REPORT INFORMATION
  Report Type: Spontaneous
  Country: JP (occurrence: None)
  Receive Date: 20120907
  Receipt Date: 20120907
  Transmission Date: 20130627
  Serious: Yes (Other)
  Sender: FDA-Public Use
  Company Number: DSA_59260_2012

PATIENT

DRUGS (5)
  1. FLUOROURACIL (FLUOROURACIL) [Suspect]
     Indication: COLORECTAL CANCER METASTATIC
     Route: 040
  2. FLUOROURACIL (FLUOROURACIL) [Suspect]
     Indication: COLORECTAL CANCER METASTATIC
     Dosage: 2400 mg/m2; every other week Intravenous (not otherwise specified)
     Route: 042
  3. CALCIUM FOLINATE [Suspect]
     Dosage: 200 mg/m2 Every other week Intravenous (not otherwise specified)
     Route: 042
  4. IRINOTECAN [Suspect]
     Dosage: 180 mg/m2. Every other weel Intravenos (not otherwise specified)
     Route: 042
  5. SUNITINIB [Suspect]
     Route: 048

REACTIONS (1)
  - Abdominal abscess [None]
